FAERS Safety Report 16907657 (Version 3)
Quarter: 2020Q2

REPORT INFORMATION
  Report Type: Other
  Country: GB (occurrence: GB)
  Receive Date: 20191011
  Receipt Date: 20200415
  Transmission Date: 20200713
  Serious: Yes (Hospitalization, Other)
  Sender: FDA-Public Use
  Company Number: GB-LUPIN PHARMACEUTICALS INC.-2019-06446

PATIENT
  Age: 33 Year
  Sex: Female

DRUGS (10)
  1. DULOXETINE. [Suspect]
     Active Substance: DULOXETINE
     Dosage: UNK
     Route: 048
  2. DESOGESTREL [Suspect]
     Active Substance: DESOGESTREL
     Dosage: UNK
     Route: 048
  3. CLOZARIL [Suspect]
     Active Substance: CLOZAPINE
     Dosage: UNK
     Route: 048
     Dates: start: 2018
  4. DESOGESTREL [Suspect]
     Active Substance: DESOGESTREL
     Indication: CONTRACEPTION
     Dosage: UNK
     Route: 048
  5. DULOXETINE. [Suspect]
     Active Substance: DULOXETINE
     Indication: PRODUCT USED FOR UNKNOWN INDICATION
     Dosage: 120 MG, QD
     Route: 048
  6. SUKKARTO [Suspect]
     Active Substance: METFORMIN HYDROCHLORIDE
     Indication: DIABETES MELLITUS
     Dosage: 500 MG, QD
     Route: 048
     Dates: start: 2018
  7. PROMETHAZINE [Suspect]
     Active Substance: PROMETHAZINE HYDROCHLORIDE
     Indication: SEDATION
     Dosage: 25 MG, QD
     Route: 048
     Dates: start: 2016
  8. CLOZARIL [Suspect]
     Active Substance: CLOZAPINE
     Indication: SCHIZOPHRENIA
     Dosage: 100 MILLIGRAM, BID
     Route: 048
     Dates: start: 20180314
  9. SUKKARTO [Suspect]
     Active Substance: METFORMIN HYDROCHLORIDE
     Dosage: 500 MG, QD
     Route: 048
     Dates: start: 2018
  10. PROMETHAZINE [Suspect]
     Active Substance: PROMETHAZINE HYDROCHLORIDE
     Dosage: UNK
     Route: 048

REACTIONS (4)
  - Salivary hypersecretion [Recovering/Resolving]
  - Mental disorder [Unknown]
  - Diabetes mellitus [Recovered/Resolved with Sequelae]
  - Constipation [Recovering/Resolving]

NARRATIVE: CASE EVENT DATE: 2018
